FAERS Safety Report 9877119 (Version 1)
Quarter: 2014Q1

REPORT INFORMATION
  Report Type: Spontaneous
  Country: GB (occurrence: None)
  Receive Date: 20140204
  Receipt Date: 20140204
  Transmission Date: 20141002
  Serious: Yes (Disabling)
  Sender: FDA-Public Use
  Company Number: AUR-APL-2014-00717

PATIENT
  Age: 64 Year
  Sex: Female
  Weight: 47 kg

DRUGS (2)
  1. ALENDRONIC ACID (ALENDRONIC ACID) [Suspect]
     Indication: OSTEOPOROSIS
     Route: 048
     Dates: start: 20081002, end: 20131101
  2. ADCAL-D3 (LEKOVIT CA) [Suspect]
     Indication: PRODUCT USED FOR UNKNOWN INDICATION
     Route: 048

REACTIONS (3)
  - Chest pain [None]
  - Musculoskeletal pain [None]
  - Back pain [None]
